FAERS Safety Report 9075439 (Version 1)
Quarter: 2013Q1

REPORT INFORMATION
  Report Type: Report from Study
  Country: US (occurrence: US)
  Receive Date: 20130129
  Receipt Date: 20130129
  Transmission Date: 20140127
  Serious: No
  Sender: FDA-Public Use
  Company Number: US-ABBOTT-12P-163-0940326-00

PATIENT
  Age: 57 Year
  Sex: Female

DRUGS (7)
  1. HUMIRA 40 MG/0.8 ML PEN [Suspect]
     Indication: PSORIATIC ARTHROPATHY
     Dates: start: 201202, end: 20120523
  2. METOPROLOL [Concomitant]
     Indication: HYPERTENSION
  3. CELAPRAM [Concomitant]
     Indication: STRESS
  4. CELAPRAM [Concomitant]
     Indication: ROAD TRAFFIC ACCIDENT
  5. OMEPRAZOLE [Concomitant]
     Indication: ABDOMINAL DISCOMFORT
  6. CRESTOR [Concomitant]
     Indication: BLOOD CHOLESTEROL INCREASED
  7. CELEBREX [Concomitant]
     Indication: PAIN
     Dosage: LOW DOSE
     Dates: end: 20120523

REACTIONS (1)
  - Drug ineffective [Not Recovered/Not Resolved]
